FAERS Safety Report 8161818-5 (Version None)
Quarter: 2012Q1

REPORT INFORMATION
  Report Type: 
  Country: None (occurrence: None)
  Receive Date: 20120224
  Receipt Date: 20110426
  Transmission Date: 20120608
  Serious: No
  Sender: FDA-Public Use
  Company Number: US-BRISTOL-MYERS SQUIBB COMPANY-15697329

PATIENT
  Age: 57 Year
  Sex: Female

DRUGS (6)
  1. METFORMIN HCL [Suspect]
     Indication: DIABETES MELLITUS
     Dosage: STARTED 10 YRS AGO STOPED BEFORE 2 MONTHS
     Route: 048
  2. GLIMEPIRIDE [Concomitant]
  3. LEVOXYL [Concomitant]
  4. RAMIPRIL [Concomitant]
  5. SINGULAIR [Concomitant]
  6. AMLODIPINE [Concomitant]

REACTIONS (1)
  - ADVERSE EVENT [None]
